FAERS Safety Report 10393359 (Version 1)
Quarter: 2014Q3

REPORT INFORMATION
  Report Type: Spontaneous
  Country: GB (occurrence: None)
  Receive Date: 20140815
  Receipt Date: 20140815
  Transmission Date: 20150326
  Serious: Yes (Disabling, Other)
  Sender: FDA-Public Use
  Company Number: AUR-APL-2014-08522

PATIENT
  Age: 43 Year
  Sex: Female

DRUGS (4)
  1. IBUPROFEN. [Concomitant]
     Active Substance: IBUPROFEN
  2. ZOPICLONE [Concomitant]
     Active Substance: ZOPICLONE
  3. NORTRIPTYLINE [Concomitant]
     Active Substance: NORTRIPTYLINE
  4. TOPIRAMATE. [Suspect]
     Active Substance: TOPIRAMATE
     Indication: MIGRAINE
     Route: 048
     Dates: start: 20140511, end: 20140623

REACTIONS (12)
  - Cough [None]
  - Hyperacusis [None]
  - Stress [None]
  - Mouth ulceration [None]
  - Paraesthesia [None]
  - Mental impairment [None]
  - Palpitations [None]
  - Suicidal ideation [None]
  - Anxiety [None]
  - Insomnia [None]
  - Migraine [None]
  - Respiratory disorder [None]

NARRATIVE: CASE EVENT DATE: 20140512
